FAERS Safety Report 7050334-X (Version None)
Quarter: 2010Q4

REPORT INFORMATION
  Report Type: 
  Country: None (occurrence: None)
  Receive Date: 20101018
  Receipt Date: 20101007
  Transmission Date: 20110411
  Serious: Yes (Life-Threatening)
  Sender: FDA-Public Use
  Company Number: US-BAYER-201035726NA

PATIENT
  Age: 34 Year
  Sex: Male
  Weight: 113 kg

DRUGS (6)
  1. AVELOX [Suspect]
     Indication: RESPIRATORY TRACT INFECTION
     Dosage: TOTAL DAILY DOSE: 400 MG  UNIT DOSE: 400 MG
     Route: 048
     Dates: start: 20100907, end: 20100907
  2. ZITHROMAX [Concomitant]
     Dates: start: 20100909
  3. SOLU-MEDROL [Concomitant]
     Route: 042
  4. PEPCID [Concomitant]
     Route: 042
  5. PREDNISONE [Concomitant]
  6. ZITHROMAX [Concomitant]

REACTIONS (7)
  - ANAPHYLACTIC SHOCK [None]
  - DYSPNOEA [None]
  - FACE OEDEMA [None]
  - FACIAL PAIN [None]
  - LIP SWELLING [None]
  - SWELLING FACE [None]
  - SWOLLEN TONGUE [None]
